FAERS Safety Report 8941483 (Version 2)
Quarter: 2012Q4

REPORT INFORMATION
  Report Type: 
  Country: DE (occurrence: DE)
  Receive Date: 20121203
  Receipt Date: 20121205
  Transmission Date: 20130627
  Serious: Yes (Hospitalization)
  Sender: FDA-Public Use
  Company Number: DE-B.I. PHARMACEUTICALS,INC./RIDGEFIELD-2012-DE-02746DE

PATIENT
  Age: 82 Year
  Sex: Male
  Weight: 85 kg

DRUGS (8)
  1. SPIRIVA 18 MIKROGRAMM KAPSEL MIT INHALATIONSPULVER [Suspect]
     Indication: CHRONIC OBSTRUCTIVE PULMONARY DISEASE
     Dates: start: 201203
  2. COAPROVEL [Concomitant]
     Indication: HYPERTENSION
     Dosage: strength: 300/12.5
  3. AMLODIPIN [Concomitant]
     Indication: HYPERTENSION
  4. ASS [Concomitant]
     Indication: CARDIOVASCULAR EVENT PROPHYLAXIS
  5. SIMVASTATIN [Concomitant]
     Indication: HYPERCHOLESTEROLAEMIA
  6. BERODUAL RESPIMAT [Concomitant]
     Indication: CHRONIC OBSTRUCTIVE PULMONARY DISEASE
  7. DOXYCYCLIN [Concomitant]
     Indication: CHRONIC OBSTRUCTIVE PULMONARY DISEASE
  8. PREDNISOLON [Concomitant]
     Indication: CHRONIC OBSTRUCTIVE PULMONARY DISEASE

REACTIONS (4)
  - Upper respiratory tract inflammation [Recovered/Resolved]
  - Cough [Recovered/Resolved]
  - Dry mouth [Recovered/Resolved]
  - Condition aggravated [Unknown]
